FAERS Safety Report 12591514 (Version 1)
Quarter: 2016Q3

REPORT INFORMATION
  Report Type: Spontaneous
  Country: US (occurrence: JP)
  Receive Date: 20160726
  Receipt Date: 20160726
  Transmission Date: 20161109
  Serious: Yes (Hospitalization, Other)
  Sender: FDA-Public Use
  Company Number: US-009507513-1503JPN000933

PATIENT
  Age: 59 Year
  Sex: Male
  Weight: 76 kg

DRUGS (3)
  1. PEGINTRON [Suspect]
     Active Substance: PEGINTERFERON ALFA-2B
     Indication: PRODUCT USED FOR UNKNOWN INDICATION
     Dosage: 120 MICROGRAM, QW; DIVIDED DOSE FREQUENCY UNKNOWN
     Route: 058
     Dates: start: 20141224, end: 20150224
  2. VANIHEP CAPSULES 150MG [Suspect]
     Active Substance: VANIPREVIR
     Dosage: 300 MG, BID
     Route: 048
     Dates: start: 20141224, end: 20150225
  3. REBETOL [Suspect]
     Active Substance: RIBAVIRIN
     Indication: PRODUCT USED FOR UNKNOWN INDICATION
     Dosage: 800 MG, QD
     Route: 048
     Dates: start: 20141224, end: 20150225

REACTIONS (1)
  - Myocardial infarction [Recovered/Resolved]

NARRATIVE: CASE EVENT DATE: 20150225
